FAERS Safety Report 12502904 (Version 1)
Quarter: 2016Q2

REPORT INFORMATION
  Report Type: Spontaneous
  Country: US (occurrence: US)
  Receive Date: 20160628
  Receipt Date: 20160628
  Transmission Date: 20160815
  Serious: No
  Sender: FDA-Public Use
  Company Number: US-009507513-1606USA007969

PATIENT
  Age: 35 Year
  Sex: Female
  Weight: 81.63 kg

DRUGS (1)
  1. IMPLANON [Suspect]
     Active Substance: ETONOGESTREL
     Indication: CONTRACEPTION
     Dosage: EVERY 3 YEARS
     Route: 059
     Dates: start: 20120718

REACTIONS (3)
  - Hypoaesthesia [Unknown]
  - Yellow skin [Unknown]
  - Product use issue [Unknown]

NARRATIVE: CASE EVENT DATE: 20160613
